FAERS Safety Report 12482073 (Version 3)
Quarter: 2017Q3

REPORT INFORMATION
  Report Type: Report from Study
  Country: KR (occurrence: KR)
  Receive Date: 20160620
  Receipt Date: 20170925
  Transmission Date: 20171127
  Serious: Yes (Death)
  Sender: FDA-Public Use
  Company Number: KP-SYNEX-T201602553

PATIENT
  Age: 0 Year
  Sex: Female
  Weight: 4 kg

DRUGS (13)
  1. VANCOMYCIN [Concomitant]
     Active Substance: VANCOMYCIN
     Dosage: 40 MG/DAY
     Route: 041
     Dates: start: 20160523, end: 20160608
  2. NITRIC OXIDE. [Suspect]
     Active Substance: NITRIC OXIDE
     Indication: RESPIRATORY FAILURE
     Dosage: 20 TO 60 PPM
     Dates: start: 20160520, end: 20160608
  3. DOPAMIN [Concomitant]
     Active Substance: DOPAMINE HYDROCHLORIDE
     Dosage: 35-100 MG/DAY
     Route: 041
     Dates: start: 20160519, end: 20160608
  4. HYDROCORTISONE. [Concomitant]
     Active Substance: HYDROCORTISONE
     Dosage: 3.5-10.5 MG/DAY
     Route: 041
     Dates: start: 20160526, end: 20160605
  5. GENTAMICIN. [Concomitant]
     Active Substance: GENTAMICIN
     Dosage: 14 MG/DAY
     Route: 042
     Dates: start: 20160519, end: 20160522
  6. IMIPENEM [Concomitant]
     Active Substance: IMIPENEM
     Dosage: 180 MG/DAY
     Route: 041
     Dates: start: 20160523, end: 20160608
  7. MILRINONE [Concomitant]
     Active Substance: MILRINONE
     Dosage: 2.5 MG/DAY
     Route: 041
     Dates: start: 20160520, end: 20160608
  8. SILDENAFIL. [Concomitant]
     Active Substance: SILDENAFIL
     Dosage: 13.8 MG/DAY
     Route: 048
     Dates: start: 20160520, end: 20160608
  9. EPINEPHRINE. [Concomitant]
     Active Substance: EPINEPHRINE
     Dosage: 2.5-5MG/DAY
     Route: 041
     Dates: start: 20160519, end: 20160608
  10. BOSENTAN. [Concomitant]
     Active Substance: BOSENTAN
     Dosage: 9MG/DAY
     Route: 048
     Dates: start: 20160603, end: 20160608
  11. AMPICILLIN [Concomitant]
     Active Substance: AMPICILLIN
     Dosage: 360 MG/DAY
     Route: 042
     Dates: start: 20160519, end: 20160522
  12. DOBUTAMIN [Concomitant]
     Active Substance: DOBUTAMINE HYDROCHLORIDE
     Dosage: 35-100 MG/DAY
     Route: 041
     Dates: start: 20160519, end: 20160608
  13. FENTANYL. [Concomitant]
     Active Substance: FENTANYL
     Dosage: 420 MCG/DAY
     Route: 041
     Dates: start: 20160519, end: 20160608

REACTIONS (4)
  - Septic shock [Fatal]
  - C-reactive protein increased [Recovered/Resolved]
  - Prescribed overdose [Unknown]
  - Methaemoglobinaemia [Recovered/Resolved]

NARRATIVE: CASE EVENT DATE: 2016
